FAERS Safety Report 25236513 (Version 2)
Quarter: 2025Q2

REPORT INFORMATION
  Report Type: Spontaneous
  Country: US (occurrence: US)
  Receive Date: 20250424
  Receipt Date: 20250505
  Transmission Date: 20250716
  Serious: No
  Sender: PFIZER
  Company Number: US-PFIZER INC-PV202500048592

PATIENT
  Age: 75 Year
  Sex: Female

DRUGS (1)
  1. IBRANCE [Suspect]
     Active Substance: PALBOCICLIB

REACTIONS (6)
  - Pain [Unknown]
  - Dyspnoea [Unknown]
  - Depression [Unknown]
  - Fatigue [Unknown]
  - White blood cell count decreased [Unknown]
  - Nausea [Unknown]
